FAERS Safety Report 4324347-2 (Version None)
Quarter: 2004Q1

REPORT INFORMATION
  Report Type: 
  Country: None (occurrence: None)
  Receive Date: 20040326
  Receipt Date: 20040202
  Transmission Date: 20041129
  Serious: No
  Sender: FDA-Public Use
  Company Number: US-GLAXOSMITHKLINE-A0496074A

PATIENT
  Sex: Male

DRUGS (4)
  1. ADVAIR DISKUS 100/50 [Suspect]
  2. PULMICORT [Concomitant]
  3. ACCUPRIL [Concomitant]
  4. SINGULAIR [Concomitant]

REACTIONS (4)
  - HEADACHE [None]
  - MEDICATION ERROR [None]
  - NASAL CONGESTION [None]
  - NAUSEA [None]
